FAERS Safety Report 8471604-4 (Version None)
Quarter: 2012Q2

REPORT INFORMATION
  Report Type: 
  Country: None (occurrence: None)
  Receive Date: 20120627
  Receipt Date: 20120612
  Transmission Date: 20120825
  Serious: Yes (Hospitalization)
  Sender: FDA-Public Use
  Company Number: GB-WATSON-2012-09135

PATIENT
  Age: 36 Year
  Sex: Female

DRUGS (7)
  1. CITALOPRAM HYDROBROMIDE [Suspect]
     Indication: PRODUCT USED FOR UNKNOWN INDICATION
     Dosage: 40 MG, DAILY
     Route: 065
  2. CITALOPRAM HYDROBROMIDE [Suspect]
     Dosage: 20 MG, DAILY
     Route: 065
     Dates: start: 20120419
  3. XEPLION                            /05724801/ [Suspect]
     Indication: PSYCHOTIC DISORDER
     Dosage: 150 MG, UNKNOWN
     Route: 030
  4. XEPLION                            /05724801/ [Suspect]
     Dosage: 100 MG, UNKNOWN
     Route: 030
     Dates: start: 20120329
  5. PROMETHAZINE [Concomitant]
     Indication: PRODUCT USED FOR UNKNOWN INDICATION
     Dosage: DOSAGE FORM: UNSPECIFIED
     Route: 065
  6. LORAZEPAM [Concomitant]
     Indication: PRODUCT USED FOR UNKNOWN INDICATION
     Dosage: 3 MG, BID, DOSAGE FORM: UNSPECIFIED
     Route: 065
  7. DIAZEPAM [Concomitant]
     Indication: PRODUCT USED FOR UNKNOWN INDICATION
     Dosage: 5 MG, DAILY, DOSAGE FORM: UNSPECIFIED
     Route: 065

REACTIONS (3)
  - PSYCHOTIC DISORDER [None]
  - AGITATION [None]
  - EXTRAPYRAMIDAL DISORDER [None]
